FAERS Safety Report 23870181 (Version 1)
Quarter: 2024Q2

REPORT INFORMATION
  Report Type: Spontaneous
  Country: US (occurrence: US)
  Receive Date: 20240517
  Receipt Date: 20240517
  Transmission Date: 20240716
  Serious: No
  Sender: FDA-Public Use
  Company Number: US-INCYTE CORPORATION-2024IN004718

PATIENT

DRUGS (2)
  1. PEMAZYRE [Suspect]
     Active Substance: PEMIGATINIB
     Indication: Neoplasm
     Dosage: UNK
     Route: 065
  2. PEMAZYRE [Suspect]
     Active Substance: PEMIGATINIB
     Dosage: 2 WEEKS ON/1 WEEK OFF
     Route: 065

REACTIONS (5)
  - Ageusia [Unknown]
  - Conjunctivitis [Unknown]
  - Decreased appetite [Unknown]
  - Dry eye [Unknown]
  - Nail disorder [Unknown]
